FAERS Safety Report 4605190-3 (Version None)
Quarter: 2005Q1

REPORT INFORMATION
  Report Type: 
  Country: None (occurrence: None)
  Receive Date: 20050311
  Receipt Date: 20050311
  Transmission Date: 20050727
  Serious: No
  Sender: FDA-Public Use
  Company Number: None

PATIENT

DRUGS (3)
  1. MIDAZOLAM 2 MG / 2 ML BEDFORD 664364 [Suspect]
     Indication: ANAESTHESIA
     Dosage: MULTIPLE DOSES TO 220 MG
     Dates: start: 20050307
  2. MIDAZOLAM 2 MG / 2 ML BEDFORD 669184 [Suspect]
     Indication: ANAESTHESIA
     Dosage: MULTIPLE DOSES TO 220 MG
     Dates: start: 20050307
  3. MIDAZOLAM 10 MG / 2 ML BEDFORD648613 [Suspect]
     Indication: ANAESTHESIA
     Dosage: MULTIPLE DOSES TO 224 MG
     Dates: start: 20050310

REACTIONS (3)
  - ANAESTHETIC COMPLICATION [None]
  - MEDICATION ERROR [None]
  - PHARMACEUTICAL PRODUCT COMPLAINT [None]
